FAERS Safety Report 21837460 (Version 1)
Quarter: 2023Q1

REPORT INFORMATION
  Report Type: Spontaneous
  Country: US (occurrence: None)
  Receive Date: 20230106
  Receipt Date: 20230106
  Transmission Date: 20230417
  Serious: No
  Sender: FDA-Public Use
  Company Number: None

PATIENT
  Age: 77 Year
  Sex: Female

DRUGS (1)
  1. TALTZ [Suspect]
     Active Substance: IXEKIZUMAB
     Indication: Psoriasis
     Dosage: 80MG EVERY 4 WEEKS UNDER THE SKIN
     Route: 058
     Dates: start: 20200324

REACTIONS (3)
  - Drug dose omission by device [None]
  - Device malfunction [None]
  - Therapy interrupted [None]

NARRATIVE: CASE EVENT DATE: 20230105
